FAERS Safety Report 10515476 (Version 1)
Quarter: 2014Q3

REPORT INFORMATION
  Report Type: Spontaneous
  Country: US (occurrence: None)
  Receive Date: 20140926
  Receipt Date: 20140926
  Transmission Date: 20150326
  Serious: No
  Sender: FDA-Public Use
  Company Number: 1000068805

PATIENT
  Sex: Male

DRUGS (7)
  1. LEVOTHYROXINE (LEVOTHYROXINE SODIUM) (LEVOTHYROXINE SODIUM) [Concomitant]
  2. AMBIEN (ZOLPIDEM TARTRATE) (ZOLPIDEM TARTRATE) [Concomitant]
  3. LINZESS [Suspect]
     Active Substance: LINACLOTIDE
     Indication: IRRITABLE BOWEL SYNDROME
     Dosage: 145MCG  (145 MCG, 1 IN 1 D), ORAL
     Route: 048
     Dates: start: 20140704, end: 20140706
  4. NIASPAN (NICOTINIC ACID) (NICOTINIC ACID) [Concomitant]
  5. VASCEPA (EICOSAPENTAENOIC ACID ETHYL ESTER) (EICOSAPENTAENOIC ACID ETHYL ESTER) [Concomitant]
  6. TRICOR (FENOFIBRATE) (FENOFIBRATE) [Concomitant]
  7. LIPITOR (ATORVASTATIN CALCIUM) (ATORVASTATIN CALCIUM) [Concomitant]

REACTIONS (2)
  - Nasal congestion [None]
  - Fatigue [None]

NARRATIVE: CASE EVENT DATE: 20140705
